FAERS Safety Report 20840941 (Version 2)
Quarter: 2022Q3

REPORT INFORMATION
  Report Type: Report from Study
  Country: DE (occurrence: DE)
  Receive Date: 20220517
  Receipt Date: 20220720
  Transmission Date: 20221026
  Serious: Yes (Hospitalization, Other)
  Sender: FDA-Public Use
  Company Number: DE-NOVARTISPH-NVSC2022DE111281

PATIENT
  Age: 12 Year
  Sex: Female
  Weight: 57 kg

DRUGS (4)
  1. ILARIS [Suspect]
     Active Substance: CANAKINUMAB
     Indication: Familial mediterranean fever
     Dosage: 150 MG
     Route: 058
     Dates: start: 20180827
  2. ILARIS [Suspect]
     Active Substance: CANAKINUMAB
     Dosage: 150 MG
     Route: 058
     Dates: start: 20180827
  3. ILARIS [Suspect]
     Active Substance: CANAKINUMAB
     Dosage: 150 MG
     Route: 058
     Dates: start: 20220114
  4. COLCHICINE [Concomitant]
     Active Substance: COLCHICINE
     Indication: Familial mediterranean fever
     Dosage: 1 MG, BID
     Route: 048
     Dates: start: 201808

REACTIONS (4)
  - Respiratory tract infection [Recovered/Resolved]
  - Flank pain [Recovered/Resolved]
  - Back pain [Recovered/Resolved]
  - Conjunctival irritation [Recovered/Resolved]

NARRATIVE: CASE EVENT DATE: 20210611
